FAERS Safety Report 5635228-6 (Version None)
Quarter: 2008Q1

REPORT INFORMATION
  Report Type: 
  Country: None (occurrence: None)
  Receive Date: 20080222
  Receipt Date: 20080211
  Transmission Date: 20080703
  Serious: No
  Sender: FDA-Public Use
  Company Number: US-BOEHRINGER INGELHEIM GMBH, GERMANY-2008-BP-02197BP

PATIENT
  Age: 85 Year
  Sex: Male

DRUGS (5)
  1. FLOMAX [Suspect]
     Indication: BENIGN PROSTATIC HYPERPLASIA
     Route: 048
     Dates: start: 20080128
  2. HYDROCHLOROTHIAZIDE [Concomitant]
  3. ENALAPRIL MALEATE [Concomitant]
  4. FOSAMAX [Concomitant]
  5. PROVIGIL [Concomitant]

REACTIONS (1)
  - NOCTURIA [None]
